FAERS Safety Report 11157201 (Version 2)
Quarter: 2015Q4

REPORT INFORMATION
  Report Type: Spontaneous
  Country: US (occurrence: US)
  Receive Date: 20150602
  Receipt Date: 20151009
  Transmission Date: 20160304
  Serious: Yes (Life-Threatening, Hospitalization, Disabling, Other)
  Sender: FDA-Public Use
  Company Number: US-ENDO PHARMACEUTICALS INC.-2015-001189

PATIENT
  Age: 57 Year
  Sex: Male
  Weight: 89.89 kg

DRUGS (5)
  1. FIRST TESTOSTERONE MC [Suspect]
     Active Substance: TESTOSTERONE
     Indication: ANDROGEN REPLACEMENT THERAPY
     Route: 065
     Dates: start: 2013
  2. BIOIDENTICAL TESTOSTERONE [Suspect]
     Active Substance: TESTOSTERONE
     Indication: ANDROGEN REPLACEMENT THERAPY
     Route: 065
     Dates: start: 2013
  3. ANDRODERM [Suspect]
     Active Substance: TESTOSTERONE
     Indication: ANDROGEN REPLACEMENT THERAPY
     Route: 065
     Dates: start: 2008
  4. TESTIM [Suspect]
     Active Substance: TESTOSTERONE
     Indication: ANDROGEN REPLACEMENT THERAPY
     Route: 062
     Dates: start: 201206, end: 201212
  5. TESTODERM [Suspect]
     Active Substance: TESTOSTERONE
     Indication: ANDROGEN REPLACEMENT THERAPY
     Route: 065
     Dates: start: 2001, end: 2008

REACTIONS (12)
  - Coronary artery occlusion [None]
  - Sleep disorder [None]
  - Tricuspid valve incompetence [None]
  - Pleural effusion [None]
  - Atrial flutter [Unknown]
  - Amnesia [None]
  - Coronary artery disease [Not Recovered/Not Resolved]
  - Depression [None]
  - Mitral valve incompetence [None]
  - Sudden cardiac death [Recovered/Resolved]
  - Myocardial infarction [Not Recovered/Not Resolved]
  - Family stress [None]

NARRATIVE: CASE EVENT DATE: 201208
